FAERS Safety Report 4624040-2 (Version None)
Quarter: 2005Q1

REPORT INFORMATION
  Report Type: 
  Country: None (occurrence: None)
  Receive Date: 20050331
  Receipt Date: 20050327
  Transmission Date: 20050727
  Serious: Yes (Death, Hospitalization)
  Sender: FDA-Public Use
  Company Number: PHBS2005PH04243

PATIENT
  Sex: Male

DRUGS (2)
  1. LEPONEX [Suspect]
     Indication: BIPOLAR DISORDER
     Dosage: 25 MG/D
     Route: 048
     Dates: start: 20050301
  2. VALPROIC ACID [Concomitant]
     Dosage: 250 MG/D
     Route: 065

REACTIONS (2)
  - MYOCARDIAL INFARCTION [None]
  - PYREXIA [None]
